FAERS Safety Report 8733591 (Version 4)
Quarter: 2012Q4

REPORT INFORMATION
  Report Type: 
  Country: JP (occurrence: JP)
  Receive Date: 20120821
  Receipt Date: 20120918
  Transmission Date: 20130627
  Serious: Yes (Other)
  Sender: FDA-Public Use
  Company Number: JP-PFIZER INC-2012202057

PATIENT
  Age: 76 None
  Sex: Male

DRUGS (10)
  1. CELECOX [Suspect]
     Indication: PAIN IN EXTREMITY
     Dosage: 200 mg, UNK
     Route: 048
     Dates: end: 201110
  2. FRANDOL [Suspect]
     Dosage: UNK
     Route: 062
  3. METHYCOBAL [Concomitant]
     Dosage: UNK
  4. MOHRUS [Concomitant]
     Dosage: UNK
  5. BAYASPIRIN [Concomitant]
     Dosage: UNK
  6. CRESTOR [Concomitant]
     Dosage: UNK
  7. MAINTATE [Concomitant]
     Dosage: UNK
  8. ALDACTONE-A [Concomitant]
     Dosage: UNK
     Route: 048
  9. WARFARIN [Concomitant]
     Dosage: UNK
     Route: 048
  10. BEPRICOR [Concomitant]
     Dosage: UNK

REACTIONS (1)
  - Cardiac operation [Unknown]
